FAERS Safety Report 8538389-4 (Version None)
Quarter: 2012Q3

REPORT INFORMATION
  Report Type: 
  Country: None (occurrence: None)
  Receive Date: 20120726
  Receipt Date: 20120724
  Transmission Date: 20120928
  Serious: No
  Sender: FDA-Public Use
  Company Number: US-PFIZER INC-2012177957

PATIENT
  Sex: Female
  Weight: 97.506 kg

DRUGS (5)
  1. LEXAPRO [Concomitant]
     Indication: DEPRESSION
     Dosage: 20 MG, 1X/DAY
  2. CHANTIX [Suspect]
     Dosage: 1 MG, 2X/DAY
     Route: 048
     Dates: start: 20120101, end: 20120715
  3. NEXIUM [Concomitant]
     Dosage: 40 MG, 1X/DAY
  4. CHANTIX [Suspect]
     Indication: SMOKING CESSATION THERAPY
     Dosage: 0.5 MG, 1X/DAY
     Route: 048
     Dates: start: 20120423, end: 20120101
  5. LEVOTHYROXINE [Concomitant]
     Dosage: 175 UG, 1X/DAY

REACTIONS (5)
  - HOT FLUSH [None]
  - GASTROINTESTINAL DISORDER [None]
  - ABNORMAL DREAMS [None]
  - FLATULENCE [None]
  - FREQUENT BOWEL MOVEMENTS [None]
